FAERS Safety Report 13273843 (Version 1)
Quarter: 2017Q1

REPORT INFORMATION
  Report Type: Spontaneous
  Country: DE (occurrence: DE)
  Receive Date: 20170227
  Receipt Date: 20170227
  Transmission Date: 20170428
  Serious: Yes (Other)
  Sender: FDA-Public Use
  Company Number: DE-JNJFOC-20170225787

PATIENT

DRUGS (2)
  1. TRABECTEDIN [Suspect]
     Active Substance: TRABECTEDIN
     Indication: LIPOSARCOMA
     Route: 042
     Dates: start: 201107
  2. TRABECTEDIN [Suspect]
     Active Substance: TRABECTEDIN
     Indication: LIPOSARCOMA
     Dosage: REDUCED DOSE OF: 1 MG/M2 OR 1.25 MG/M2
     Route: 042

REACTIONS (3)
  - Nephropathy toxic [Unknown]
  - Haematotoxicity [Unknown]
  - Hepatotoxicity [Unknown]
